FAERS Safety Report 10066333 (Version 2)
Quarter: 2015Q2

REPORT INFORMATION
  Report Type: Spontaneous
  Country: US (occurrence: US)
  Receive Date: 20140408
  Receipt Date: 20150407
  Transmission Date: 20150821
  Serious: Yes (Death, Life-Threatening, Hospitalization, Other)
  Sender: FDA-Public Use
  Company Number: US-MERCK-1404USA004101

PATIENT
  Sex: Female
  Weight: 63.49 kg

DRUGS (2)
  1. JANUVIA [Suspect]
     Active Substance: SITAGLIPTIN PHOSPHATE
     Indication: TYPE 2 DIABETES MELLITUS
     Dosage: 50 MG, QD
     Route: 048
     Dates: start: 20070424, end: 20101229
  2. JANUVIA [Suspect]
     Active Substance: SITAGLIPTIN PHOSPHATE
     Dosage: 50 MG, QD
     Route: 048
     Dates: start: 20111216, end: 20120829

REACTIONS (35)
  - Peripheral artery bypass [Unknown]
  - Fall [Unknown]
  - Nephrolithiasis [Unknown]
  - Coronary arterial stent insertion [Unknown]
  - Renal atrophy [Unknown]
  - Pleural effusion [Unknown]
  - Pancreatic carcinoma [Fatal]
  - Bile duct stent insertion [Unknown]
  - Cholecystectomy [Unknown]
  - Chronic kidney disease [Not Recovered/Not Resolved]
  - Nephrocalcinosis [Unknown]
  - Hypercholesterolaemia [Unknown]
  - Skin disorder [Unknown]
  - Pain in extremity [Unknown]
  - Diabetes mellitus inadequate control [Unknown]
  - Diabetic vascular disorder [Unknown]
  - Myocardial infarction [Unknown]
  - Encephalopathy [Unknown]
  - Acute kidney injury [Unknown]
  - Skin ulcer [Unknown]
  - Oedema [Unknown]
  - Clostridium difficile colitis [Unknown]
  - Dry mouth [Unknown]
  - Hypokalaemia [Unknown]
  - Pneumonia aspiration [Unknown]
  - Hypoglycaemia [Unknown]
  - Hypertension [Unknown]
  - Diarrhoea [Unknown]
  - Blood creatine phosphokinase increased [Unknown]
  - Pneumonia bacterial [Unknown]
  - Atrial fibrillation [Unknown]
  - Laceration [Unknown]
  - Ecchymosis [Unknown]
  - Gastrooesophageal reflux disease [Unknown]
  - Urinary tract infection [Unknown]

NARRATIVE: CASE EVENT DATE: 20110907
